FAERS Safety Report 24921316 (Version 1)
Quarter: 2025Q1

REPORT INFORMATION
  Report Type: Spontaneous
  Country: US (occurrence: US)
  Receive Date: 20250204
  Receipt Date: 20250204
  Transmission Date: 20250408
  Serious: No
  Sender: GILEAD
  Company Number: US-GILEAD-2025-0702270

PATIENT
  Sex: Male

DRUGS (2)
  1. LENACAPAVIR [Suspect]
     Active Substance: LENACAPAVIR
     Indication: HIV infection
     Route: 065
     Dates: start: 20231223
  2. LENACAPAVIR [Suspect]
     Active Substance: LENACAPAVIR
     Route: 065
     Dates: start: 20250131

REACTIONS (1)
  - Injection site nodule [Not Recovered/Not Resolved]
